FAERS Safety Report 6709247-2 (Version None)
Quarter: 2010Q2

REPORT INFORMATION
  Report Type: 
  Country: None (occurrence: None)
  Receive Date: 20100504
  Receipt Date: 20100427
  Transmission Date: 20101027
  Serious: Yes (Hospitalization, Other)
  Sender: FDA-Public Use
  Company Number: US-ELI_LILLY_AND_COMPANY-US201004008035

PATIENT
  Sex: Male

DRUGS (6)
  1. HUMULIN 70/30 [Suspect]
     Indication: TYPE 2 DIABETES MELLITUS
     Dosage: 39 U, 2/D
     Dates: start: 20090101
  2. HUMULIN 70/30 [Suspect]
     Dosage: 42 U, 2/D
     Dates: start: 20090101
  3. METFORMIN HCL [Concomitant]
     Dosage: 500 MG, 4/D
  4. LISINOPRIL [Concomitant]
     Dosage: 20 MG, 2/D
  5. FUROSEMIDE [Concomitant]
     Dosage: UNK, 2/D
  6. GLYBURIDE [Concomitant]
     Dosage: UNK, 4/D

REACTIONS (12)
  - AGEUSIA [None]
  - ANOSMIA [None]
  - ARTHROPATHY [None]
  - BLOOD GLUCOSE INCREASED [None]
  - FALL [None]
  - GAIT DISTURBANCE [None]
  - IMPAIRED HEALING [None]
  - MUSCULAR WEAKNESS [None]
  - NEUROPATHY PERIPHERAL [None]
  - OEDEMA PERIPHERAL [None]
  - SKIN DISORDER [None]
  - TOE AMPUTATION [None]
